FAERS Safety Report 4915353-5 (Version None)
Quarter: 2006Q1

REPORT INFORMATION
  Report Type: 
  Country: None (occurrence: None)
  Receive Date: 20060113
  Receipt Date: 20051027
  Transmission Date: 20060701
  Serious: No
  Sender: FDA-Public Use
  Company Number: 2005SP003702

PATIENT
  Age: 56 Year
  Sex: Male
  Weight: 96.6162 kg

DRUGS (2)
  1. LUNESTA [Suspect]
     Dosage: 2 MG;ORAL
     Route: 048
     Dates: start: 20051015, end: 20051021
  2. AMBIEN [Concomitant]

REACTIONS (1)
  - VERTIGO [None]
